FAERS Safety Report 9767826 (Version 1)
Quarter: 2013Q4

REPORT INFORMATION
  Report Type: Spontaneous
  Country: US (occurrence: US)
  Receive Date: 20131217
  Receipt Date: 20131217
  Transmission Date: 20140711
  Serious: No
  Sender: FDA-Public Use
  Company Number: US-PFIZER INC-2013356193

PATIENT
  Age: 18 Year
  Sex: Male

DRUGS (1)
  1. ADVIL [Suspect]
     Indication: PYREXIA
     Dosage: UNK
     Route: 048

REACTIONS (2)
  - Overdose [Unknown]
  - Urticaria [Unknown]
